FAERS Safety Report 12242199 (Version 1)
Quarter: 2016Q2

REPORT INFORMATION
  Report Type: Spontaneous
  Country: US (occurrence: US)
  Receive Date: 20160406
  Receipt Date: 20160406
  Transmission Date: 20160815
  Serious: No
  Sender: FDA-Public Use
  Company Number: US-ACTELION PHARMACEUTICALS US, INC.-A-NJ2014-102741

PATIENT
  Age: 78 Year
  Sex: Female

DRUGS (3)
  1. COUMADIN [Concomitant]
     Active Substance: WARFARIN SODIUM
  2. TRACLEER [Suspect]
     Active Substance: BOSENTAN
     Indication: PULMONARY ARTERIAL HYPERTENSION
     Dosage: UNK
     Route: 048
  3. RIOCIGUAT [Suspect]
     Active Substance: RIOCIGUAT
     Indication: PRODUCT USED FOR UNKNOWN INDICATION
     Dosage: 1.5 MG, TID
     Route: 048

REACTIONS (9)
  - Hypotension [Unknown]
  - Thrombosis [Unknown]
  - Gait disturbance [Unknown]
  - Diarrhoea [Unknown]
  - Dizziness [Unknown]
  - Oxygen consumption increased [Unknown]
  - Skin discomfort [Unknown]
  - Pain in extremity [Unknown]
  - Oedema peripheral [Unknown]
